FAERS Safety Report 19035790 (Version 1)
Quarter: 2021Q1

REPORT INFORMATION
  Report Type: Spontaneous
  Country: GB (occurrence: GB)
  Receive Date: 20210321
  Receipt Date: 20210321
  Transmission Date: 20210420
  Serious: Yes (Other)
  Sender: FDA-Public Use
  Company Number: GB-TEVA-2021-GB-1890729

PATIENT
  Age: 56 Year
  Sex: Female
  Weight: 86.17 kg

DRUGS (1)
  1. SPIRONOLACTON [Suspect]
     Active Substance: SPIRONOLACTONE
     Indication: HYPERTENSION
     Dosage: 12.5
     Route: 048
     Dates: start: 20210228

REACTIONS (2)
  - Bladder pain [Not Recovered/Not Resolved]
  - Cystitis interstitial [Not Recovered/Not Resolved]

NARRATIVE: CASE EVENT DATE: 20210301
